FAERS Safety Report 17262883 (Version 1)
Quarter: 2020Q1

REPORT INFORMATION
  Report Type: Spontaneous
  Country: NL (occurrence: NL)
  Receive Date: 20200113
  Receipt Date: 20200113
  Transmission Date: 20200409
  Serious: Yes (Death, Life-Threatening)
  Sender: FDA-Public Use
  Company Number: NL-TEVA-2020-NL-1167127

PATIENT
  Age: 46 Year
  Sex: Female
  Weight: 70 kg

DRUGS (27)
  1. LOPERAMIDE CAPSULE 2 MG [Concomitant]
     Dosage: ZN 4 DD 2 MG, THEN AS LONG AS DIARRHEA PERSISTS 2 MG AFTER EACH SUBSEQUENT THIN STOOL, MAX 16 MG PER
     Dates: start: 20191125, end: 20191128
  2. SPIRONOLACTON TABLET 25 MG [Concomitant]
     Dosage: 2 DD 25 MG
     Dates: start: 20191127, end: 20191127
  3. MYCOFENOLZUUR TABLET MSR 360 MG [Concomitant]
     Dosage: 2 X PER DAY 1080 MG
     Dates: start: 20191126, end: 20191128
  4. FLUDARABINE [Suspect]
     Active Substance: FLUDARABINE PHOSPHATE
     Indication: HAEMATOLOGICAL MALIGNANCY
     Dosage: INJECTION / INFUSION, 1 MG / MG (MILLIGRAM PER MILLIGRAM),, 2X COURSE (2016, 2019), 1 DF
     Dates: start: 20191121, end: 20191125
  5. CIPROFLOXAXICINE TABLET 500 MG [Concomitant]
     Dosage: 2 DD 500 MG
     Dates: start: 20191119, end: 20191128
  6. HEPARINE 200 IE/2 ML [Concomitant]
     Dosage: 1X PER DAY 200  IE
     Dates: start: 20191113, end: 20191204
  7. NATRIUMCHLORIDE INFU 0.9% 1000 ML [Concomitant]
     Dosage: 1000 ML START ADMINISTRATION 3 HOURS BEFORE CORDBLOOD SCT ON LUMEN BLUE LEAD-IN TIME 3 HOURS, 1 DF
     Dates: start: 20191127, end: 20191128
  8. PANTOPRAZOL TABLET MSR 40 MG [Concomitant]
     Dosage: 1 DD 40 MG
     Dates: start: 20191112, end: 20191128
  9. BENZYLPENICCILINE 1000000IE 50 ML [Concomitant]
     Dosage: 6 X PER DAG 1000000 IE
     Dates: start: 20191127, end: 20191208
  10. GRANISETRON INFOPL CONC 1 MG/ML AMP 1 ML [Concomitant]
     Dates: start: 20191125, end: 20191127
  11. FENTANYL PLEISTER 12 MCG/UUR (GENERIEK + DUROGESIC) [Concomitant]
     Dosage: 1 X 12 MCG PER 3 DAYS, 1 DF
     Dates: start: 20191117, end: 20191128
  12. COLISTINE TABLET 200 MG [Concomitant]
     Dosage: 4 DD 200 MG
     Dates: start: 20191119, end: 20191129
  13. FLUCONAZOL CAPSULE 200 MG [Concomitant]
     Dosage: 1 DD 200 MG
     Dates: start: 20191126, end: 20191128
  14. MACROGOL/ZOUTEN POEDER VOOR DRANK [Concomitant]
     Dosage: 1 DD 1, 1 DF
     Dates: start: 20191118, end: 20191128
  15. MEROPENEM  1000 MG/50 ML [Concomitant]
     Dosage: 2 X PER DAAG 1000 MG
     Dates: start: 20191127, end: 20191127
  16. METOCLOPRAMIDE TABLET 10 MG [Concomitant]
     Dosage: 10 MG
     Dates: start: 20191126, end: 20191128
  17. COLISTINE MONDSPOELING 1 MG/ML [Concomitant]
     Dosage: 4 DD 5 ML
     Dates: start: 20191119, end: 20191129
  18. FLUCONAZOL CAPSULE 200 MG [Concomitant]
     Dates: start: 20191128, end: 20191205
  19. LANTUS SOLOSTAR INJ 100IE/ML [Concomitant]
     Dosage: 1 DATED 22 IU
     Dates: start: 20191126, end: 20191214
  20. PREDNISOLON INJPRDR 25 MG (PARENTERAAL) [Concomitant]
     Dosage: 1 DD 65 MG
     Dates: start: 20191127
  21. NATRIUMCHLORIDE INFU 0.9% 1000 ML [Concomitant]
     Dosage: 1000 ML RUN-IN TIME 12 HOURS, 1 DF
     Dates: start: 20191127, end: 20191128
  22. TOTALE LICHAAMSBESTRALING (TBI) [Concomitant]
     Dosage: 1 X PER DAY , 1 DF
     Dates: end: 20191127
  23. TEMAZEPAM CAPSULE 10 MG [Concomitant]
     Dosage: 1 DD 10 MG
     Dates: start: 20191122, end: 20191128
  24. NATRIUMWATERSTOFCARBONAAT 1000 ML [Concomitant]
     Dosage: 83.33 ML / HOUR (ADMINISTRATION 83.333 ML / HOUR FULL-FAT / EMPTY), 1 DF
     Dates: start: 20191126, end: 20191127
  25. CICLOSPORINE INFOPL CONC 50 MG/ML AMP 1 ML [Concomitant]
     Dosage: 2 X PER DAY 100 MG
     Dates: start: 20191126, end: 20191128
  26. BISOPROLOL TABLET 2,5 MG [Concomitant]
     Dosage: 2 DD 3,75 MG, 3 MG
  27. NATRIUMCHLORIDE 250 ML [Concomitant]
     Dosage: 20.8 ML / HOUR (ADMINISTRATION 20.8 ML / HOUR, 1 DF
     Dates: start: 20191127, end: 20191128

REACTIONS (1)
  - Toxic leukoencephalopathy [Fatal]

NARRATIVE: CASE EVENT DATE: 20191127
